FAERS Safety Report 25276935 (Version 8)
Quarter: 2025Q3

REPORT INFORMATION
  Report Type: Report from Study
  Country: AR (occurrence: AR)
  Receive Date: 20250507
  Receipt Date: 20250908
  Transmission Date: 20251020
  Serious: Yes (Hospitalization, Other)
  Sender: TAKEDA
  Company Number: AR-TAKEDA-2025TUS043333

PATIENT
  Age: 60 Year
  Sex: Female
  Weight: 63 kg

DRUGS (5)
  1. HUMAN IMMUNOGLOBULIN G\HYALURONIDASE RECOMBINANT HUMAN [Suspect]
     Active Substance: HUMAN IMMUNOGLOBULIN G\HYALURONIDASE (HUMAN RECOMBINANT)
     Indication: Hypogammaglobulinaemia
     Dosage: UNK UNK, MONTHLY
     Dates: start: 20240920
  2. HUMAN IMMUNOGLOBULIN G\HYALURONIDASE RECOMBINANT HUMAN [Suspect]
     Active Substance: HUMAN IMMUNOGLOBULIN G\HYALURONIDASE (HUMAN RECOMBINANT)
  3. HUMAN IMMUNOGLOBULIN G\HYALURONIDASE RECOMBINANT HUMAN [Suspect]
     Active Substance: HUMAN IMMUNOGLOBULIN G\HYALURONIDASE (HUMAN RECOMBINANT)
     Dosage: 30 GRAM, MONTHLY
  4. HUMAN IMMUNOGLOBULIN G\HYALURONIDASE RECOMBINANT HUMAN [Suspect]
     Active Substance: HUMAN IMMUNOGLOBULIN G\HYALURONIDASE (HUMAN RECOMBINANT)
  5. HUMAN IMMUNOGLOBULIN G\HYALURONIDASE RECOMBINANT HUMAN [Suspect]
     Active Substance: HUMAN IMMUNOGLOBULIN G\HYALURONIDASE (HUMAN RECOMBINANT)

REACTIONS (8)
  - White blood cell count decreased [Recovering/Resolving]
  - Platelet count decreased [Recovering/Resolving]
  - Discouragement [Recovered/Resolved]
  - Hodgkin^s disease [Not Recovered/Not Resolved]
  - Abdominal pain [Recovered/Resolved]
  - Pyrexia [Recovered/Resolved]
  - Blood immunoglobulin A decreased [Unknown]
  - Blood immunoglobulin M decreased [Unknown]

NARRATIVE: CASE EVENT DATE: 20250424
